FAERS Safety Report 13164441 (Version 2)
Quarter: 2017Q3

REPORT INFORMATION
  Report Type: Report from Study
  Country: US (occurrence: US)
  Receive Date: 20170130
  Receipt Date: 20170720
  Transmission Date: 20171127
  Serious: Yes (Other)
  Sender: FDA-Public Use
  Company Number: US-TEVA-734935USA

PATIENT
  Age: 0 Day
  Sex: Male
  Weight: 9.08 kg

DRUGS (8)
  1. SYNTHROID [Concomitant]
     Active Substance: LEVOTHYROXINE SODIUM
     Indication: HYPOTHYROIDISM
     Dosage: 50 MICROGRAM DAILY;
     Route: 065
     Dates: start: 2011
  2. TYLENOL [Concomitant]
     Active Substance: ACETAMINOPHEN
     Route: 065
     Dates: start: 2007
  3. PRENATAL VITAMINS [Concomitant]
     Active Substance: VITAMINS
     Indication: PREGNANCY
     Dosage: 1 DOSAGE FORMS DAILY;
     Route: 048
  4. STOOL SOFTENER (DOCUSATE) [Concomitant]
     Active Substance: DOCUSATE
     Route: 065
  5. LATUDA [Concomitant]
     Active Substance: LURASIDONE HYDROCHLORIDE
     Indication: ANXIETY
     Dosage: 40 MILLIGRAM DAILY;
     Route: 065
     Dates: start: 2014
  6. LAMICTAL [Concomitant]
     Active Substance: LAMOTRIGINE
     Route: 065
     Dates: start: 201511
  7. FERROUS SULFATE. [Concomitant]
     Active Substance: FERROUS SULFATE
     Route: 048
  8. NUVIGIL [Suspect]
     Active Substance: ARMODAFINIL
     Dosage: 75 MILLIGRAM DAILY; 1/2 150 MG DAILY
     Route: 064
     Dates: end: 201602

REACTIONS (5)
  - Microcephaly [Not Recovered/Not Resolved]
  - Nonreassuring foetal heart rate pattern [Unknown]
  - Premature baby [Unknown]
  - Small for dates baby [Unknown]
  - Foetal exposure during pregnancy [Unknown]

NARRATIVE: CASE EVENT DATE: 20160701
